FAERS Safety Report 16202591 (Version 2)
Quarter: 2020Q1

REPORT INFORMATION
  Report Type: Spontaneous
  Country: US (occurrence: US)
  Receive Date: 20190416
  Receipt Date: 20200225
  Transmission Date: 20200409
  Serious: Yes (Other)
  Sender: FDA-Public Use
  Company Number: US-ASTRAZENECA-2018SF26946

PATIENT
  Age: 63 Year
  Sex: Female
  Weight: 46.7 kg

DRUGS (76)
  1. NEXIUM [Suspect]
     Active Substance: ESOMEPRAZOLE MAGNESIUM
     Indication: GASTROOESOPHAGEAL REFLUX DISEASE
     Route: 048
     Dates: start: 2012, end: 2017
  2. NEXIUM [Suspect]
     Active Substance: ESOMEPRAZOLE MAGNESIUM
     Indication: GASTROOESOPHAGEAL REFLUX DISEASE
     Route: 048
     Dates: start: 20140617
  3. NEXIUM [Suspect]
     Active Substance: ESOMEPRAZOLE MAGNESIUM
     Indication: GASTROOESOPHAGEAL REFLUX DISEASE
     Dosage: GENERIC
     Route: 065
     Dates: start: 20171117
  4. ZANTAC [Concomitant]
     Active Substance: RANITIDINE HYDROCHLORIDE
     Dosage: ZANTAC 75 (OTC)
  5. PRAVASTATIN. [Concomitant]
     Active Substance: PRAVASTATIN
  6. TORADOL [Concomitant]
     Active Substance: KETOROLAC TROMETHAMINE
  7. TOVIAZ [Concomitant]
     Active Substance: FESOTERODINE FUMARATE
  8. VOLTAREN [Concomitant]
     Active Substance: DICLOFENAC SODIUM
  9. OMEPRAZOLE. [Suspect]
     Active Substance: OMEPRAZOLE
     Indication: GASTROOESOPHAGEAL REFLUX DISEASE
     Dosage: GENERIC
     Route: 065
     Dates: start: 2014
  10. AXID AR [Concomitant]
     Active Substance: NIZATIDINE
     Dosage: GENERIC
  11. ZANTAC [Concomitant]
     Active Substance: RANITIDINE HYDROCHLORIDE
     Dosage: GENERIC
  12. TAGAMET [Concomitant]
     Active Substance: CIMETIDINE
     Dosage: TAGAMET
  13. CIPROFLOXACIN. [Concomitant]
     Active Substance: CIPROFLOXACIN
  14. DULOXETINE. [Concomitant]
     Active Substance: DULOXETINE
  15. LIDOCAINE. [Concomitant]
     Active Substance: LIDOCAINE
  16. METHYLPREDNISOLONE. [Concomitant]
     Active Substance: METHYLPREDNISOLONE
  17. CYCLOBENZAPRINE. [Concomitant]
     Active Substance: CYCLOBENZAPRINE
     Dates: start: 20071219
  18. OMEPRAZOLE. [Suspect]
     Active Substance: OMEPRAZOLE
     Indication: GASTROOESOPHAGEAL REFLUX DISEASE
     Dosage: GENERIC
     Route: 065
     Dates: start: 2012
  19. ALEVE [Concomitant]
     Active Substance: NAPROXEN SODIUM
     Indication: PAIN
     Dates: start: 2016, end: 2019
  20. TAGAMET [Concomitant]
     Active Substance: CIMETIDINE
     Dosage: GENERIC
  21. LEVOTHYROXINE. [Concomitant]
     Active Substance: LEVOTHYROXINE
  22. DOXEPIN [Concomitant]
     Active Substance: DOXEPIN
  23. HYDROCODONE [Concomitant]
     Active Substance: HYDROCODONE
  24. PRAVASTATIN SODIUM. [Concomitant]
     Active Substance: PRAVASTATIN SODIUM
     Dosage: 100 MG
  25. GUAIFENESIN. [Concomitant]
     Active Substance: GUAIFENESIN
  26. FLEXERIL [Concomitant]
     Active Substance: CYCLOBENZAPRINE HYDROCHLORIDE
  27. CYANOCOBALAMIN. [Concomitant]
     Active Substance: CYANOCOBALAMIN
  28. ZITHROMAX [Concomitant]
     Active Substance: AZITHROMYCIN DIHYDRATE
     Dates: start: 20010404
  29. VIOXX [Concomitant]
     Active Substance: ROFECOXIB
     Dates: start: 20030418
  30. CLONAZEPAM. [Concomitant]
     Active Substance: CLONAZEPAM
     Dates: start: 20040316
  31. LYRICA [Concomitant]
     Active Substance: PREGABALIN
     Dates: start: 20071024
  32. KETOPROFEN. [Concomitant]
     Active Substance: KETOPROFEN
     Dates: start: 20070831
  33. NEXIUM [Suspect]
     Active Substance: ESOMEPRAZOLE MAGNESIUM
     Indication: GASTROOESOPHAGEAL REFLUX DISEASE
     Dosage: GENERIC
     Route: 065
     Dates: start: 2014
  34. OMEPRAZOLE. [Suspect]
     Active Substance: OMEPRAZOLE
     Indication: GASTROOESOPHAGEAL REFLUX DISEASE
     Dosage: GENERIC
     Route: 065
     Dates: start: 2013
  35. AXID AR [Concomitant]
     Active Substance: NIZATIDINE
     Dosage: AXID AR
  36. PEPCID [Concomitant]
     Active Substance: FAMOTIDINE
     Dosage: GENERIC
  37. PREDNISONE. [Concomitant]
     Active Substance: PREDNISONE
  38. ONDANSETRON [Concomitant]
     Active Substance: ONDANSETRON
  39. ZOFRAN [Concomitant]
     Active Substance: ONDANSETRON HYDROCHLORIDE
     Dates: start: 20180726
  40. SYMBICORT [Concomitant]
     Active Substance: BUDESONIDE\FORMOTEROL FUMARATE DIHYDRATE
  41. ZOLPIDEM [Concomitant]
     Active Substance: ZOLPIDEM TARTRATE
     Dosage: 100 MG
  42. MELOXICAM. [Concomitant]
     Active Substance: MELOXICAM
  43. ROPINIROLE. [Concomitant]
     Active Substance: ROPINIROLE
  44. TRAMADOL. [Concomitant]
     Active Substance: TRAMADOL
  45. TOPIRAMATE. [Concomitant]
     Active Substance: TOPIRAMATE
  46. ALBUTEROL SULFATE. [Concomitant]
     Active Substance: ALBUTEROL SULFATE
  47. DICLOFENAC SODIUM. [Concomitant]
     Active Substance: DICLOFENAC SODIUM
  48. ESTRADIOL. [Concomitant]
     Active Substance: ESTRADIOL
     Dates: start: 20120823
  49. NEXIUM [Suspect]
     Active Substance: ESOMEPRAZOLE MAGNESIUM
     Indication: GASTROOESOPHAGEAL REFLUX DISEASE
     Route: 048
     Dates: start: 2013, end: 2017
  50. BENADRYL [Concomitant]
     Active Substance: DIPHENHYDRAMINE HYDROCHLORIDE
     Indication: HYPERSENSITIVITY
     Dates: start: 2005, end: 2019
  51. PEPCID [Concomitant]
     Active Substance: FAMOTIDINE
     Dosage: PEPCID
  52. DIAZEPAM. [Concomitant]
     Active Substance: DIAZEPAM
  53. ALCOHOL. [Concomitant]
     Active Substance: ALCOHOL
  54. FLONASE [Concomitant]
     Active Substance: FLUTICASONE PROPIONATE
  55. NYSTATIN. [Concomitant]
     Active Substance: NYSTATIN
  56. PROAIR HFA [Concomitant]
     Active Substance: ALBUTEROL SULFATE
  57. XYZAL [Concomitant]
     Active Substance: LEVOCETIRIZINE DIHYDROCHLORIDE
  58. PROPOXYPHENE. [Concomitant]
     Active Substance: PROPOXYPHENE
     Dosage: 100 MG
  59. DIPHENHYDRAMINE. [Concomitant]
     Active Substance: DIPHENHYDRAMINE
     Dosage: 100 MG
  60. SPIRONOLACTONE. [Concomitant]
     Active Substance: SPIRONOLACTONE
     Dates: start: 20070831
  61. TEMAZEPAM. [Concomitant]
     Active Substance: TEMAZEPAM
     Dates: start: 20151123
  62. TIZANIDINE. [Concomitant]
     Active Substance: TIZANIDINE
  63. GABAPENTIN. [Concomitant]
     Active Substance: GABAPENTIN
  64. VENLAFAXINE [Concomitant]
     Active Substance: VENLAFAXINE HYDROCHLORIDE
  65. SINGULAIR [Concomitant]
     Active Substance: MONTELUKAST SODIUM
  66. ALPRAZOLAM. [Concomitant]
     Active Substance: ALPRAZOLAM
  67. IBUPROFEN. [Concomitant]
     Active Substance: IBUPROFEN
  68. NORCO [Concomitant]
     Active Substance: ACETAMINOPHEN\HYDROCODONE BITARTRATE
     Dosage: 100 MG
  69. AMITRIPTYLINE [Concomitant]
     Active Substance: AMITRIPTYLINE
  70. SULFAMETHOXAZOLE [Concomitant]
     Active Substance: SULFAMETHOXAZOLE
  71. NEXIUM [Suspect]
     Active Substance: ESOMEPRAZOLE MAGNESIUM
     Indication: GASTROOESOPHAGEAL REFLUX DISEASE
     Route: 048
     Dates: start: 20160128
  72. LORATADINE. [Concomitant]
     Active Substance: LORATADINE
  73. AMBIEN [Concomitant]
     Active Substance: ZOLPIDEM TARTRATE
  74. PHENAZOPYRIDINE. [Concomitant]
     Active Substance: PHENAZOPYRIDINE
  75. BEXTRA [Concomitant]
     Active Substance: VALDECOXIB
     Dates: start: 20030418
  76. BOOSTRIX [Concomitant]
     Active Substance: TETANUS TOXOID, REDUCED DIPHTHERIA TOXOID AND ACELLULAR PERTUSSIS VACCINE, ADSORBED ANTIGENS
     Dates: start: 20151123

REACTIONS (1)
  - Chronic kidney disease [Not Recovered/Not Resolved]

NARRATIVE: CASE EVENT DATE: 2017
